FAERS Safety Report 7439133-4 (Version None)
Quarter: 2011Q2

REPORT INFORMATION
  Report Type: 
  Country: None (occurrence: None)
  Receive Date: 20110427
  Receipt Date: 20100129
  Transmission Date: 20111010
  Serious: No
  Sender: FDA-Public Use
  Company Number: US-BAYER-201012881NA

PATIENT
  Sex: Female

DRUGS (2)
  1. PLAN B [Concomitant]
  2. YAZ [Suspect]
     Route: 048

REACTIONS (2)
  - DRUG DOSE OMISSION [None]
  - MENORRHAGIA [None]
